FAERS Safety Report 5902912-6 (Version None)
Quarter: 2008Q3

REPORT INFORMATION
  Report Type: 
  Country: None (occurrence: None)
  Receive Date: 20080930
  Receipt Date: 20080919
  Transmission Date: 20090109
  Serious: Yes (Other)
  Sender: FDA-Public Use
  Company Number: FR-NOVOPROD-273044

PATIENT
  Sex: Female
  Weight: 70 kg

DRUGS (9)
  1. AERX SOLUTION 2.6 MG/STRIP [Suspect]
     Indication: INSULIN-REQUIRING TYPE 2 DIABETES MELLITUS
     Dosage: 62 IU, QD
     Route: 055
     Dates: start: 20070504
  2. INSULIN DETEMIR FLEXPEN [Suspect]
     Indication: INSULIN-REQUIRING TYPE 2 DIABETES MELLITUS
     Dosage: 26 IU, QD
     Route: 058
     Dates: start: 20070504
  3. KENZEN [Concomitant]
     Dosage: 16 MG, QD
     Route: 048
     Dates: start: 20000101
  4. LEVOTHYROX [Concomitant]
     Dosage: 100 UG, QD
     Route: 048
     Dates: start: 19930101
  5. CELECTOL [Concomitant]
     Dosage: 200 MG, QD
     Route: 048
     Dates: start: 20070523
  6. LASIX [Concomitant]
     Dosage: 40 MG, QD
     Route: 048
     Dates: start: 20070911
  7. OGAST [Concomitant]
     Dosage: 15 MG, QD
     Route: 048
     Dates: start: 20071008
  8. ZANIDIP [Concomitant]
     Dosage: 20 MG, QD
     Dates: start: 20070923
  9. HYPERIUM                           /00939801/ [Concomitant]
     Dosage: 1 MG, QD
     Route: 048
     Dates: start: 20071008

REACTIONS (1)
  - CARBON MONOXIDE DIFFUSING CAPACITY DECREASED [None]
